FAERS Safety Report 4878489-3 (Version None)
Quarter: 2006Q1

REPORT INFORMATION
  Report Type: 
  Country: None (occurrence: None)
  Receive Date: 20060110
  Receipt Date: 20060110
  Transmission Date: 20060701
  Serious: Yes (Hospitalization)
  Sender: FDA-Public Use
  Company Number: None

PATIENT
  Sex: Male
  Weight: 109 kg

DRUGS (1)
  1. RETEVASE [Suspect]
     Indication: ACUTE MYOCARDIAL INFARCTION
     Dosage: 5+5 UNITS IV PUSH
     Route: 042
     Dates: start: 20060104

REACTIONS (2)
  - CORONARY ARTERY DISEASE [None]
  - VENTRICULAR SEPTAL DEFECT [None]
